FAERS Safety Report 23517762 (Version 5)
Quarter: 2024Q2

REPORT INFORMATION
  Report Type: Spontaneous
  Country: US (occurrence: US)
  Receive Date: 20240213
  Receipt Date: 20240611
  Transmission Date: 20240716
  Serious: No
  Sender: FDA-Public Use
  Company Number: US-PFIZER INC-PV202400019496

PATIENT
  Age: 82 Year
  Sex: Female

DRUGS (2)
  1. IBRANCE [Suspect]
     Active Substance: PALBOCICLIB
     Dosage: 125 MG
     Dates: start: 20240207
  2. IBRANCE [Suspect]
     Active Substance: PALBOCICLIB
     Dosage: 100 MG, CYCLIC (10 DAYS ON AND 17 DAYS OFF)

REACTIONS (14)
  - Fatigue [Unknown]
  - Headache [Unknown]
  - Full blood count abnormal [Unknown]
  - Hypersomnia [Unknown]
  - Back pain [Unknown]
  - Laboratory test abnormal [Unknown]
  - White blood cell count decreased [Unknown]
  - Constipation [Unknown]
  - Pain [Unknown]
  - Asthenia [Unknown]
  - Poor quality sleep [Unknown]
  - Nausea [Recovered/Resolved]
  - Off label use [Unknown]
  - Product use issue [Unknown]

NARRATIVE: CASE EVENT DATE: 20240101
